FAERS Safety Report 7215837-3 (Version None)
Quarter: 2011Q1

REPORT INFORMATION
  Report Type: 
  Country: None (occurrence: None)
  Receive Date: 20110105
  Receipt Date: 20110105
  Transmission Date: 20110831
  Serious: Yes (Hospitalization)
  Sender: FDA-Public Use
  Company Number: None

PATIENT
  Age: 58 Year
  Sex: Male
  Weight: 98 kg

DRUGS (1)
  1. AZITHROMYCIN [Suspect]
     Indication: UPPER RESPIRATORY TRACT INFECTION
     Dosage: 250 MG EVERY DAY PO
     Route: 048
     Dates: start: 20100705, end: 20100709

REACTIONS (4)
  - PERSONALITY CHANGE [None]
  - INSOMNIA [None]
  - HYPOMANIA [None]
  - CONVULSION [None]
